FAERS Safety Report 14626976 (Version 1)
Quarter: 2018Q1

REPORT INFORMATION
  Report Type: Spontaneous
  Country: ZA (occurrence: ZA)
  Receive Date: 20180312
  Receipt Date: 20180312
  Transmission Date: 20180509
  Serious: Yes (Death, Other)
  Sender: FDA-Public Use
  Company Number: ZA-PFIZER INC-2018096578

PATIENT
  Age: 65 Year
  Sex: Female

DRUGS (12)
  1. OMEZ /00661201/ [Suspect]
     Active Substance: OMEPRAZOLE
     Dosage: 40 MG, UNK
  2. BETACOR /00008501/ [Suspect]
     Active Substance: BETAMETHASONE
     Dosage: 5 MG, UNK
  3. ACTIVELLE [Suspect]
     Active Substance: ESTRADIOL\NORETHINDRONE ACETATE
     Dosage: UNK
  4. TRANQIPAM [Suspect]
     Active Substance: LORAZEPAM
     Dosage: 2.5 MG, UNK
  5. ALDACTONE [Suspect]
     Active Substance: SPIRONOLACTONE
     Dosage: 25 MG, UNK
  6. WARFARIN [Suspect]
     Active Substance: WARFARIN
     Dosage: 5 MG, UNK
  7. ELTROXIN [Suspect]
     Active Substance: LEVOTHYROXINE
     Dosage: 50 UG, UNK
  8. ECOTRIN [Suspect]
     Active Substance: ASPIRIN
     Dosage: 81 MG, UNK
  9. HYPERPHEN [Suspect]
     Active Substance: HYDRALAZINE HYDROCHLORIDE
     Dosage: 50 MG, UNK
  10. PURGOXIN [Suspect]
     Active Substance: DIGOXIN
     Dosage: 0.25 MG, UNK
  11. SLOW MAG /01486809/ [Suspect]
     Active Substance: MAGNESIUM
     Dosage: 450 MG, UNK
  12. UNAT /01036501/ [Suspect]
     Active Substance: TORSEMIDE
     Dosage: 10 MG, UNK

REACTIONS (1)
  - Death [Fatal]

NARRATIVE: CASE EVENT DATE: 20180227
